FAERS Safety Report 19390080 (Version 2)
Quarter: 2021Q2

REPORT INFORMATION
  Report Type: Spontaneous
  Country: CN (occurrence: CN)
  Receive Date: 20210608
  Receipt Date: 20210610
  Transmission Date: 20210717
  Serious: Yes (Hospitalization)
  Sender: FDA-Public Use
  Company Number: CN-TAKEDA-2021TUS035612

PATIENT
  Age: 70 Year
  Sex: Male
  Weight: 68 kg

DRUGS (78)
  1. ROSUVASTATIN. [Concomitant]
     Active Substance: ROSUVASTATIN
     Indication: HYPERLIPIDAEMIA
     Dosage: 10 MILLIGRAM, QD
     Route: 048
  2. POTASSIUM CHLORIDE. [Concomitant]
     Active Substance: POTASSIUM CHLORIDE
     Dosage: 1 GRAM, BID
     Route: 048
     Dates: start: 20201227, end: 20210110
  3. BUDESONIDE;FORMOTEROL [Concomitant]
     Active Substance: BUDESONIDE\FORMOTEROL
     Indication: CHRONIC OBSTRUCTIVE PULMONARY DISEASE
     Dosage: UNK
     Route: 050
     Dates: start: 2019, end: 2019
  4. ESOMEPRAZOLE. [Concomitant]
     Active Substance: ESOMEPRAZOLE MAGNESIUM
     Indication: GASTROINTESTINAL DISORDER THERAPY
     Dosage: 40 MILLIGRAM
     Route: 048
     Dates: start: 20191203, end: 20191206
  5. DOMPERIDONE [Concomitant]
     Active Substance: DOMPERIDONE
     Indication: GASTROINTESTINAL DISORDER THERAPY
     Dosage: 10 MILLIGRAM, TID
     Route: 048
     Dates: start: 20191203, end: 20191206
  6. MOXIFLOXACIN HYDROCHLORIDE. [Concomitant]
     Active Substance: MOXIFLOXACIN HYDROCHLORIDE
     Indication: BRONCHITIS CHRONIC
     Dosage: 0.4 MILLIGRAM
     Route: 048
     Dates: start: 20200115, end: 20200119
  7. MOXIFLOXACIN HYDROCHLORIDE. [Concomitant]
     Active Substance: MOXIFLOXACIN HYDROCHLORIDE
     Indication: PNEUMONIA
     Dosage: 0.4 MILLIGRAM
     Route: 048
     Dates: start: 20200710, end: 20200715
  8. MOXIFLOXACIN HYDROCHLORIDE. [Concomitant]
     Active Substance: MOXIFLOXACIN HYDROCHLORIDE
     Dosage: 0.4 MILLIGRAM
     Route: 048
     Dates: start: 20201006, end: 20201008
  9. DARATUMUMAB [Suspect]
     Active Substance: DARATUMUMAB
     Indication: PLASMA CELL MYELOMA
     Dosage: UNK
     Route: 065
  10. MECOBALAMIN [Concomitant]
     Active Substance: METHYLCOBALAMIN
     Indication: POLYNEUROPATHY
     Dosage: 500 MILLIGRAM, BID
     Route: 048
     Dates: start: 20191208, end: 20200312
  11. POTASSIUM CHLORIDE. [Concomitant]
     Active Substance: POTASSIUM CHLORIDE
     Indication: HYPOKALAEMIA
     Dosage: 1 GRAM, BID
     Route: 048
     Dates: start: 20200130, end: 20200130
  12. POTASSIUM CHLORIDE. [Concomitant]
     Active Substance: POTASSIUM CHLORIDE
     Dosage: 1 GRAM, BID
     Route: 048
     Dates: start: 20200529, end: 20200709
  13. TRAMADOL HYDROCHLORIDE. [Concomitant]
     Active Substance: TRAMADOL HYDROCHLORIDE
     Indication: ARTHRALGIA
     Dosage: 0.4 MILLIGRAM, Q12H
     Route: 048
     Dates: start: 20191208, end: 20191208
  14. OXYCODONE HYDROCHLORIDE. [Concomitant]
     Active Substance: OXYCODONE HYDROCHLORIDE
     Indication: ARTHRALGIA
     Dosage: 17 MILLIGRAM, Q12H
     Route: 048
     Dates: start: 20191210, end: 20191210
  15. MECOBALAMINE [Concomitant]
     Active Substance: METHYLCOBALAMIN
     Indication: PERIPHERAL SENSORY NEUROPATHY
     Dosage: 0.5 MILLIGRAM, BID
     Route: 048
     Dates: start: 20200312
  16. POTASSIUM CITRATE. [Concomitant]
     Active Substance: POTASSIUM CITRATE
     Indication: MINERAL SUPPLEMENTATION
     Dosage: 2 GRAM, TID
     Route: 048
     Dates: start: 20200505, end: 20200515
  17. SODIUM CHLORIDE. [Concomitant]
     Active Substance: SODIUM CHLORIDE
     Indication: ANAESTHESIA
     Dosage: 500 MILLILITER
     Route: 042
     Dates: start: 20210323, end: 20210323
  18. IVABRADINE [Concomitant]
     Active Substance: IVABRADINE
     Indication: HEART RATE ABNORMAL
     Dosage: UNK
     Route: 065
  19. PREDNISONE. [Suspect]
     Active Substance: PREDNISONE
     Indication: PLASMA CELL MYELOMA
     Dosage: 110 MILLIGRAM
     Route: 048
     Dates: start: 20191212, end: 20210522
  20. ROSUVASTATIN. [Concomitant]
     Active Substance: ROSUVASTATIN
     Dosage: 5 MILLIGRAM
     Route: 048
     Dates: start: 20210225
  21. EPRISTERIDE. [Concomitant]
     Active Substance: EPRISTERIDE
     Indication: BENIGN PROSTATIC HYPERPLASIA
     Dosage: 5 MILLIGRAM, BID
     Route: 048
  22. POTASSIUM CHLORIDE. [Concomitant]
     Active Substance: POTASSIUM CHLORIDE
     Dosage: 1 GRAM
     Route: 048
     Dates: start: 20201102, end: 20201116
  23. OXYCODONE HYDROCHLORIDE. [Concomitant]
     Active Substance: OXYCODONE HYDROCHLORIDE
     Dosage: 40 MILLIGRAM, Q12H
     Route: 048
     Dates: start: 20191212, end: 20191213
  24. LIDOCAINE HYDROCHLORIDE. [Concomitant]
     Active Substance: LIDOCAINE HYDROCHLORIDE
     Indication: ANAESTHESIA
     Dosage: 5 MILLILITER, QD
     Route: 030
     Dates: start: 20200702, end: 20200702
  25. METOPROLOL FUMARATE [Concomitant]
     Active Substance: METOPROLOL FUMARATE
     Dosage: UNK
  26. VELCADE [Suspect]
     Active Substance: BORTEZOMIB
     Indication: PLASMA CELL MYELOMA
     Dosage: 2.5 MILLIGRAM
     Route: 058
     Dates: start: 20191212, end: 20210519
  27. MELPHALAN. [Suspect]
     Active Substance: MELPHALAN
     Indication: PLASMA CELL MYELOMA
     Dosage: 12 MILLIGRAM
     Route: 048
     Dates: start: 20191212, end: 20210522
  28. IRBESARTAN. [Concomitant]
     Active Substance: IRBESARTAN
     Indication: HYPERTENSION
     Dosage: 75 MILLIGRAM, BID
     Route: 048
  29. POTASSIUM CHLORIDE. [Concomitant]
     Active Substance: POTASSIUM CHLORIDE
     Indication: MINERAL SUPPLEMENTATION
     Dosage: 1 GRAM, BID
     Route: 048
     Dates: start: 20191208, end: 20191216
  30. LEUCOGEN [Concomitant]
     Active Substance: LEUCOGEN
     Indication: WHITE BLOOD CELL COUNT DECREASED
     Dosage: 1 MILLIGRAM, TID
     Route: 048
     Dates: start: 20200106
  31. METOCLOPRAMIDE. [Concomitant]
     Active Substance: METOCLOPRAMIDE
     Indication: NAUSEA
     Dosage: 5 MILLIGRAM, TID
     Route: 048
     Dates: start: 20200109, end: 20200120
  32. LACTULOSE. [Concomitant]
     Active Substance: LACTULOSE
     Indication: CONSTIPATION
     Dosage: 90 MILLIGRAM
     Route: 048
     Dates: start: 20200109, end: 20200109
  33. MOXIFLOXACIN HYDROCHLORIDE. [Concomitant]
     Active Substance: MOXIFLOXACIN HYDROCHLORIDE
     Indication: RESPIRATORY TRACT INFECTION
     Dosage: 250 MILLILITER
     Route: 042
     Dates: start: 20200109, end: 20200110
  34. MOXIFLOXACIN HYDROCHLORIDE. [Concomitant]
     Active Substance: MOXIFLOXACIN HYDROCHLORIDE
     Indication: PNEUMONIA
     Dosage: UNK
     Route: 042
     Dates: start: 20201007, end: 20201015
  35. AMBROXOL HYDROCHLORIDE [Concomitant]
     Active Substance: AMBROXOL HYDROCHLORIDE
     Indication: RESPIRATORY TRACT INFECTION
     Dosage: 15 MILLIGRAM
     Route: 042
     Dates: start: 20200109, end: 20200110
  36. TIOTROPIUM BROMIDE [Concomitant]
     Active Substance: TIOTROPIUM BROMIDE
     Indication: CHRONIC OBSTRUCTIVE PULMONARY DISEASE
     Dosage: UNK
     Route: 045
     Dates: start: 20200528
  37. ASPRIN [Concomitant]
     Active Substance: ASPIRIN
     Indication: THROMBOSIS PROPHYLAXIS
     Dosage: 100 MILLIGRAM
     Route: 048
     Dates: start: 20210319
  38. IODIXANOL. [Concomitant]
     Active Substance: IODIXANOL
     Indication: ANAESTHESIA
     Dosage: 250 MILLILITER
     Route: 042
     Dates: start: 20210323, end: 20210323
  39. HEPARIN SODIUM. [Concomitant]
     Active Substance: HEPARIN SODIUM
     Indication: THROMBOSIS PROPHYLAXIS
     Dosage: UNK
     Route: 042
     Dates: start: 20210323, end: 20210323
  40. CHOLINE [Concomitant]
     Active Substance: CHOLINE
     Indication: LACUNAR INFARCTION
     Dosage: 0.1 MILLIGRAM, BID
     Route: 048
     Dates: start: 20191208
  41. POTASSIUM CHLORIDE. [Concomitant]
     Active Substance: POTASSIUM CHLORIDE
     Dosage: 1 GRAM, BID
     Route: 048
     Dates: start: 20201127, end: 20201210
  42. POTASSIUM CHLORIDE. [Concomitant]
     Active Substance: POTASSIUM CHLORIDE
     Dosage: 1 GRAM, BID
     Route: 048
     Dates: start: 20210225, end: 20210318
  43. ZOPICLONE [Concomitant]
     Active Substance: ZOPICLONE
     Indication: INSOMNIA
     Dosage: 7.5 MILLIGRAM
     Route: 048
  44. BENZBROMARONE [Concomitant]
     Active Substance: BENZBROMARONE
     Indication: HYPERURICAEMIA
     Dosage: 50 MILLIGRAM
     Route: 048
     Dates: start: 2019, end: 2020
  45. GEFARNATE [Concomitant]
     Active Substance: GEFARNATE
     Indication: GASTROINTESTINAL DISORDER THERAPY
     Dosage: 50 MILLIGRAM, TID
     Route: 048
     Dates: start: 20200410, end: 20200413
  46. MOXIFLOXACIN HYDROCHLORIDE. [Concomitant]
     Active Substance: MOXIFLOXACIN HYDROCHLORIDE
     Dosage: 0.4 GRAM
     Route: 048
     Dates: start: 20201101, end: 20201107
  47. CEFACLOR. [Concomitant]
     Active Substance: CEFACLOR
     Indication: PHARYNGITIS
     Dosage: 0.25 MILLIGRAM, TID
     Route: 048
     Dates: start: 20200713, end: 20200715
  48. POTASSIUM CHLORIDE. [Concomitant]
     Active Substance: POTASSIUM CHLORIDE
     Indication: MINERAL SUPPLEMENTATION
     Dosage: 10 MILLILITER, QD
     Route: 042
     Dates: start: 20200820, end: 20200820
  49. ISOSORBIDE NITRATE [Concomitant]
     Active Substance: ISOSORBIDE MONONITRATE
     Indication: CHRONIC OBSTRUCTIVE PULMONARY DISEASE
     Dosage: 30 MILLIGRAM
     Route: 042
     Dates: start: 20210319, end: 20210324
  50. ESTAZOLAM. [Concomitant]
     Active Substance: ESTAZOLAM
     Indication: INSOMNIA
     Dosage: 1 MILLIGRAM
     Route: 048
     Dates: start: 20210319, end: 20210322
  51. SODIUM CHLORIDE. [Concomitant]
     Active Substance: SODIUM CHLORIDE
     Dosage: 500 MILLILITER, BID
     Route: 042
     Dates: start: 20210323, end: 20210323
  52. NITROGLYCERIN. [Concomitant]
     Active Substance: NITROGLYCERIN
     Indication: ANAESTHESIA
     Dosage: 5 MILLIGRAM
     Route: 042
     Dates: start: 20210323, end: 20210323
  53. FOLIC ACID. [Concomitant]
     Active Substance: FOLIC ACID
     Indication: NUTRITIONAL SUPPLEMENTATION
     Dosage: 5 MILLIGRAM, QD
     Route: 048
     Dates: start: 20210428, end: 20210428
  54. TERAZOSIN HYDROCHLORIDE. [Concomitant]
     Active Substance: TERAZOSIN HYDROCHLORIDE
     Indication: BENIGN PROSTATIC HYPERPLASIA
     Dosage: 2 MILLIGRAM, QD
     Route: 048
  55. POTASSIUM CHLORIDE. [Concomitant]
     Active Substance: POTASSIUM CHLORIDE
     Dosage: 1 GRAM, BID
     Route: 048
     Dates: start: 20200922, end: 20201005
  56. OXYCODONE HYDROCHLORIDE. [Concomitant]
     Active Substance: OXYCODONE HYDROCHLORIDE
     Dosage: 40 MILLIGRAM, Q12H
     Route: 048
     Dates: start: 20191215, end: 20191223
  57. POTASSIUM CHLORIDE. [Concomitant]
     Active Substance: POTASSIUM CHLORIDE
     Dosage: 10 MILLILITER
     Route: 042
     Dates: start: 20210320, end: 20210323
  58. ATROPINE SULFATE. [Concomitant]
     Active Substance: ATROPINE SULFATE
     Indication: ANAESTHESIA
     Dosage: 0.5 MILLIGRAM
     Route: 042
     Dates: start: 20210323, end: 20210323
  59. CELECOXIB. [Concomitant]
     Active Substance: CELECOXIB
     Dosage: 0.3 GRAM, QD
     Route: 048
     Dates: start: 20210414
  60. MECOBALAMIN [Concomitant]
     Active Substance: METHYLCOBALAMIN
     Dosage: 0.5 GRAM, TID
     Route: 048
     Dates: start: 20201102, end: 20201102
  61. ZOLEDRONIC ACID [Concomitant]
     Active Substance: ZOLEDRONIC ACID
     Indication: BONE DENSITY DECREASED
     Dosage: 4 MILLIGRAM
     Route: 042
     Dates: start: 20191209, end: 20191209
  62. ALLOPURINOL. [Concomitant]
     Active Substance: ALLOPURINOL
     Indication: HYPERURICAEMIA
     Dosage: 0.1 GRAM, TID
     Route: 048
     Dates: start: 20200407
  63. CEFDINIR. [Concomitant]
     Active Substance: CEFDINIR
     Indication: PNEUMONIA
     Dosage: 0.1 GRAM, TID
     Route: 048
     Dates: start: 20201020, end: 20201026
  64. AMILORIDE HYDROCHLORIDE. [Concomitant]
     Active Substance: AMILORIDE HYDROCHLORIDE
     Indication: HYPERTENSION
     Dosage: UNK
     Route: 048
     Dates: start: 20201127, end: 20201220
  65. ACETYLCYSTEINE. [Concomitant]
     Active Substance: ACETYLCYSTEINE
     Indication: CHRONIC OBSTRUCTIVE PULMONARY DISEASE
     Dosage: 0.4 GRAM
     Route: 048
     Dates: start: 20210211, end: 20210318
  66. POTASSIUM CHLORIDE. [Concomitant]
     Active Substance: POTASSIUM CHLORIDE
     Dosage: 20 MILLILITER
     Route: 042
     Dates: start: 20210319, end: 20210319
  67. POTASSIUM CHLORIDE. [Concomitant]
     Active Substance: POTASSIUM CHLORIDE
     Dosage: 10 MILLILITER
     Route: 042
     Dates: start: 20210320, end: 20210324
  68. SODIUM CHLORIDE. [Concomitant]
     Active Substance: SODIUM CHLORIDE
     Indication: FLUID REPLACEMENT
     Dosage: 1000 MILLILITER
     Route: 042
     Dates: start: 20210323, end: 20210323
  69. DOPAMINE HYDROCHLORIDE. [Concomitant]
     Active Substance: DOPAMINE HYDROCHLORIDE
     Indication: ANAESTHESIA
     Dosage: 20 MILLIGRAM
     Route: 042
     Dates: start: 20210323, end: 20210323
  70. DEXAMETHASONE SODIUM PHOSPHATE. [Concomitant]
     Active Substance: DEXAMETHASONE SODIUM PHOSPHATE
     Indication: ANAESTHESIA
     Dosage: 5 MILLIGRAM
     Route: 042
     Dates: start: 20210323, end: 20210323
  71. VOGLIBOSE [Concomitant]
     Active Substance: VOGLIBOSE
     Indication: DIABETES MELLITUS
     Dosage: 0.2 MILLIGRAM, TID
     Route: 048
     Dates: start: 20191208, end: 20191214
  72. MECOBALAMIN [Concomitant]
     Active Substance: METHYLCOBALAMIN
     Dosage: 0.5 GRAM, TID
     Route: 048
     Dates: start: 20201127, end: 20201210
  73. MECOBALAMIN [Concomitant]
     Active Substance: METHYLCOBALAMIN
     Dosage: 0.5 GRAM, TID
     Route: 048
     Dates: start: 20201227, end: 20210110
  74. POTASSIUM CHLORIDE. [Concomitant]
     Active Substance: POTASSIUM CHLORIDE
     Dosage: 0.5 GRAM, BID
     Route: 048
     Dates: start: 20210320, end: 20210423
  75. NORCANTHARIDIN [Concomitant]
     Indication: WHITE BLOOD CELL COUNT DECREASED
     Dosage: 5 MILLIGRAM, TID
     Route: 048
     Dates: start: 20200113, end: 20200630
  76. OMEPRAZOLE. [Concomitant]
     Active Substance: OMEPRAZOLE
     Indication: PROPHYLAXIS AGAINST GASTROINTESTINAL ULCER
     Dosage: 20 MILLIGRAM, BID
     Route: 048
     Dates: start: 20200410, end: 20200413
  77. OZAGREL SODIUM AND SODIUM CHLORIDE [Concomitant]
     Indication: LACUNAR INFARCTION
     Dosage: 80 MILLIGRAM, BID
     Route: 042
     Dates: start: 20191130, end: 20191205
  78. LIDOCAINE HYDROCHLORIDE. [Concomitant]
     Active Substance: LIDOCAINE HYDROCHLORIDE
     Dosage: 5 MILLILITER
     Route: 042
     Dates: start: 20210323, end: 20210323

REACTIONS (1)
  - Arteriosclerosis coronary artery [Recovered/Resolved]

NARRATIVE: CASE EVENT DATE: 20210526
